FAERS Safety Report 4595432-5 (Version None)
Quarter: 2005Q1

REPORT INFORMATION
  Report Type: 
  Country: None (occurrence: None)
  Receive Date: 20050228
  Receipt Date: 20050228
  Transmission Date: 20050727
  Serious: No
  Sender: FDA-Public Use
  Company Number: None

PATIENT
  Sex: Female

DRUGS (2)
  1. MORPHINE SULFATE [Suspect]
     Dosage: INJECTABLE
  2. ABBOTT LABS PCA PUMP-SPECIFIC MODEL # NOT PROVIDED [Suspect]

REACTIONS (11)
  - CARDIO-RESPIRATORY ARREST [None]
  - CYANOSIS [None]
  - DEPRESSED LEVEL OF CONSCIOUSNESS [None]
  - DEVICE FAILURE [None]
  - DYSPNOEA [None]
  - EMOTIONAL DISORDER [None]
  - FEAR [None]
  - MEDICATION ERROR [None]
  - OVERDOSE [None]
  - RESPIRATORY ARREST [None]
  - SOMNOLENCE [None]
